FAERS Safety Report 8595197-6 (Version None)
Quarter: 2012Q3

REPORT INFORMATION
  Report Type: 
  Country: None (occurrence: None)
  Receive Date: 20120807
  Receipt Date: 20120807
  Transmission Date: 20120928
  Serious: Yes (Death, Hospitalization)
  Sender: FDA-Public Use
  Company Number: None

PATIENT
  Sex: Male
  Weight: 73.1 kg

DRUGS (6)
  1. PREDNISONE TAB [Suspect]
     Dosage: 600 MG
     Dates: end: 20120724
  2. DOXORUBICIN HYDROCHLORIDE [Suspect]
     Dosage: 79.2 MG
     Dates: end: 20120724
  3. VINCRISTINE SULFATE [Concomitant]
     Dosage: 3.2 MG
     Dates: end: 20120724
  4. ETOPOSIDE [Suspect]
     Dosage: 396 MG
     Dates: end: 20120724
  5. RITUXIMAB (MOAB C2B8 ANTI CD20, CHIMERIC) [Concomitant]
     Dosage: 743 MG
     Dates: end: 20120720
  6. CYCLOPHOSPHAMIDE [Suspect]
     Dosage: 743 MG
     Dates: end: 20120724

REACTIONS (1)
  - DEATH [None]
